FAERS Safety Report 11172603 (Version 1)
Quarter: 2015Q2

REPORT INFORMATION
  Report Type: Spontaneous
  Country: US (occurrence: US)
  Receive Date: 20150608
  Receipt Date: 20150608
  Transmission Date: 20150821
  Serious: No
  Sender: FDA-Public Use
  Company Number: US-AMGEN-USASP2014041596

PATIENT
  Age: 81 Year
  Sex: Female

DRUGS (2)
  1. PROCRIT [Suspect]
     Active Substance: ERYTHROPOIETIN
     Indication: PRODUCT USED FOR UNKNOWN INDICATION
     Dosage: UNK
     Route: 065
  2. COUMADIN [Concomitant]
     Active Substance: WARFARIN SODIUM
     Dosage: UNK

REACTIONS (7)
  - Leukopenia [Unknown]
  - Haemorrhoids [Unknown]
  - Contusion [Unknown]
  - Large intestine polyp [Unknown]
  - Anaemia [Unknown]
  - Oedema peripheral [Unknown]
  - Heart rate irregular [Unknown]
